FAERS Safety Report 24794196 (Version 1)
Quarter: 2024Q4

REPORT INFORMATION
  Report Type: Spontaneous
  Country: US (occurrence: US)
  Receive Date: 20241231
  Receipt Date: 20241231
  Transmission Date: 20250115
  Serious: No
  Sender: ABBVIE
  Company Number: US-ABBVIE-6066702

PATIENT
  Age: 69 Year
  Sex: Female

DRUGS (3)
  1. REFRESH TEARS PF [Suspect]
     Active Substance: CARBOXYMETHYLCELLULOSE SODIUM\GLYCERIN
     Indication: Dry eye
     Dosage: LAST ADMIN DATE-2024, FORM STRENGTH- 10 MILLILITRE(S), ONE DROP ON BOTH EYES 3 OR 4 TIMES A DAY, ...
     Route: 047
     Dates: start: 202410
  2. REFRESH TEARS PF [Suspect]
     Active Substance: CARBOXYMETHYLCELLULOSE SODIUM\GLYCERIN
     Dosage: LAST ADMIN DATE-2024, FORM STRENGTH- 10 MILLILITRE(S), ONE DROP ON BOTH EYES 3 OR 4 TIMES A DAY, ...
     Route: 047
     Dates: start: 202411
  3. REFRESH TEARS PF [Suspect]
     Active Substance: CARBOXYMETHYLCELLULOSE SODIUM\GLYCERIN
     Dosage: FORM STRENGTH- 10 MILLILITRE(S), ONE DROP ON BOTH EYES 3 OR 4 TIMES A DAY, CMC 0.5% AND GLYCERIN ...
     Route: 047
     Dates: start: 202412, end: 202412

REACTIONS (3)
  - Product taste abnormal [Recovered/Resolved]
  - Product odour abnormal [Not Recovered/Not Resolved]
  - Poor quality product administered [Recovered/Resolved]

NARRATIVE: CASE EVENT DATE: 20240101
